FAERS Safety Report 6332940-0 (Version None)
Quarter: 2009Q3

REPORT INFORMATION
  Report Type: 
  Country: None (occurrence: None)
  Receive Date: 20090828
  Receipt Date: 20090819
  Transmission Date: 20100115
  Serious: Yes (Other)
  Sender: FDA-Public Use
  Company Number: IN-JNJFOC-20090806452

PATIENT
  Age: 28 Year
  Sex: Male

DRUGS (3)
  1. INFLIXIMAB [Suspect]
     Dosage: DAY 42
     Route: 042
  2. INFLIXIMAB [Suspect]
     Dosage: DAY 14
     Route: 042
  3. INFLIXIMAB [Suspect]
     Indication: SPONDYLOARTHROPATHY
     Route: 042

REACTIONS (1)
  - LYMPH NODE TUBERCULOSIS [None]
